FAERS Safety Report 20730073 (Version 1)
Quarter: 2022Q2

REPORT INFORMATION
  Report Type: Spontaneous
  Country: US (occurrence: US)
  Receive Date: 20220420
  Receipt Date: 20220420
  Transmission Date: 20220721
  Serious: No
  Sender: FDA-Public Use
  Company Number: US-PFIZER INC-202200453019

PATIENT
  Age: 70 Year
  Sex: Female
  Weight: 79.83 kg

DRUGS (6)
  1. DILANTIN [Suspect]
     Active Substance: PHENYTOIN
     Indication: Epilepsy
     Dosage: 300 MG, DAILY (100MG IN THE MORNING 200MG AT NIGHT)
  2. DILANTIN [Suspect]
     Active Substance: PHENYTOIN
     Indication: Generalised tonic-clonic seizure
  3. DILANTIN [Suspect]
     Active Substance: PHENYTOIN
     Indication: Petit mal epilepsy
  4. DEPAKOTE [Concomitant]
     Active Substance: DIVALPROEX SODIUM
     Indication: Epilepsy
     Dosage: 500 MG, 3X/DAY
  5. LEVOTHYROXINE [Concomitant]
     Active Substance: LEVOTHYROXINE
     Dosage: 175 UG (SEVEN DAYS A WEEK)
  6. LEVOTHYROXINE [Concomitant]
     Active Substance: LEVOTHYROXINE
     Dosage: 25 UG (3 DAYS A WEEK)

REACTIONS (1)
  - Nervousness [Unknown]
